FAERS Safety Report 8978880 (Version 1)
Quarter: 2012Q4

REPORT INFORMATION
  Report Type: 
  Country: GB (occurrence: GB)
  Receive Date: 20121220
  Receipt Date: 20121220
  Transmission Date: 20130627
  Serious: Yes (Life-Threatening, Hospitalization, Other)
  Sender: FDA-Public Use
  Company Number: GB-WATSON-2012-22277

PATIENT
  Age: 88 Year
  Sex: Male
  Weight: 54 kg

DRUGS (8)
  1. TRIMETHOPRIM [Suspect]
     Indication: URINARY TRACT INFECTION
     Dosage: 200 mg, bid
     Route: 048
     Dates: start: 20120915, end: 20120918
  2. TRIMETHOPRIM [Suspect]
     Dosage: 200 mg, bid
     Route: 048
     Dates: start: 20120920, end: 20120928
  3. SERTRALINE HYDROCHLORIDE (UNKNOWN) [Suspect]
     Indication: DEPRESSION
     Dosage: 100 mg, daily
     Route: 048
     Dates: start: 20120821, end: 20121009
  4. TAMSULOSIN [Concomitant]
     Indication: BENIGN PROSTATIC HYPERPLASIA
     Dosage: 400ug
     Route: 048
     Dates: start: 20120926
  5. FOLIC ACID [Concomitant]
     Indication: PRODUCT USED FOR UNKNOWN INDICATION
     Dosage: 5mg
     Route: 048
     Dates: start: 20120927
  6. AMLODIPINE [Concomitant]
     Indication: HYPERTENSION
     Dosage: 5mg
     Route: 048
     Dates: end: 20120905
  7. CLOPIDOGREL [Concomitant]
     Indication: PRODUCT USED FOR UNKNOWN INDICATION
     Dosage: 75mg
     Route: 048
     Dates: start: 2003, end: 20120907
  8. TEMAZEPAM [Concomitant]
     Indication: PRODUCT USED FOR UNKNOWN INDICATION
     Dosage: unknown
     Route: 048

REACTIONS (4)
  - Neutropenia [Not Recovered/Not Resolved]
  - Agranulocytosis [Not Recovered/Not Resolved]
  - Sepsis [Not Recovered/Not Resolved]
  - Infection [Not Recovered/Not Resolved]
